FAERS Safety Report 10619401 (Version 2)
Quarter: 2014Q4

REPORT INFORMATION
  Report Type: Spontaneous
  Country: NO (occurrence: NO)
  Receive Date: 20141202
  Receipt Date: 20141224
  Transmission Date: 20150529
  Serious: Yes (Other)
  Sender: FDA-Public Use
  Company Number: NO-TAKEDA-2014TUS012597

PATIENT
  Age: 42 Year
  Sex: Male
  Weight: 84 kg

DRUGS (13)
  1. VENTOLINE                          /00139501/ [Concomitant]
     Indication: ASTHMA
     Dosage: 0.2 MG, AS NEEDED
     Route: 050
  2. TOLVON [Concomitant]
     Active Substance: MIANSERIN
     Indication: SEDATIVE THERAPY
     Dosage: 30 MG,  QD (EVENING)
     Route: 048
  3. CALCIGRAN FORTE [Concomitant]
     Dosage: 1000/800, QD
  4. SERETIDE [Concomitant]
     Active Substance: FLUTICASONE FUROATE\SALMETEROL XINAFOATE
     Indication: ASTHMA
     Dosage: 50/500 MCG, BID
     Route: 050
  5. AEROBEC [Concomitant]
     Indication: ASTHMA
     Dosage: 100 ?G, BID
     Route: 050
  6. XANOR [Concomitant]
     Active Substance: ALPRAZOLAM
     Indication: PANIC DISORDER
     Dosage: 1 MG, TID
     Route: 048
  7. PREDNISOLON                        /00016201/ [Concomitant]
     Active Substance: PREDNISOLONE
     Indication: VASCULITIS
  8. INGEN [Concomitant]
  9. PREDNISOLON                        /00016201/ [Concomitant]
     Active Substance: PREDNISOLONE
     Indication: ASTHMA
     Dosage: 7.5 MG, QD
     Route: 048
  10. PNEUMOCOCCUS VACCINE [Concomitant]
     Dosage: UNK
     Dates: start: 20141127, end: 20141127
  11. ENTYVIO [Suspect]
     Active Substance: VEDOLIZUMAB
     Indication: CROHN^S DISEASE
     Dosage: 300 MG
     Route: 042
     Dates: start: 20140930
  12. IMODIUM [Concomitant]
     Active Substance: LOPERAMIDE HYDROCHLORIDE
     Indication: DIARRHOEA
     Dosage: 2 MG, AS NEEDED
  13. INFLUENZA VACCINE [Concomitant]
     Active Substance: INFLUENZA VIRUS VACCINE
     Dosage: UNK
     Dates: start: 201411, end: 201411

REACTIONS (1)
  - Cognitive disorder [Recovering/Resolving]

NARRATIVE: CASE EVENT DATE: 20141111
